FAERS Safety Report 10308460 (Version 1)
Quarter: 2014Q3

REPORT INFORMATION
  Report Type: Spontaneous
  Country: US (occurrence: None)
  Receive Date: 20140715
  Receipt Date: 20140715
  Transmission Date: 20150326
  Serious: Yes (Other)
  Sender: FDA-Public Use
  Company Number: None

PATIENT
  Age: 84 Year
  Sex: Female
  Weight: 88 kg

DRUGS (1)
  1. ENOXAPARIN [Suspect]
     Active Substance: ENOXAPARIN
     Indication: THROMBOSIS PROPHYLAXIS
     Dosage: 30 MG. QD, SC.
     Dates: start: 20140528, end: 20140601

REACTIONS (4)
  - Injection site erythema [None]
  - Reaction to drug excipients [None]
  - Device allergy [None]
  - Injection site pruritus [None]

NARRATIVE: CASE EVENT DATE: 20140602
